FAERS Safety Report 25874236 (Version 1)
Quarter: 2025Q4

REPORT INFORMATION
  Report Type: Spontaneous
  Country: EU (occurrence: EU)
  Receive Date: 20251002
  Receipt Date: 20251002
  Transmission Date: 20260117
  Serious: Yes (Life-Threatening, Hospitalization, Disabling)
  Sender: B. BRAUN MEDICAL INC.
  Company Number: None

PATIENT
  Age: 34 Year
  Sex: Female

DRUGS (5)
  1. LIDOCAINE [Suspect]
     Active Substance: LIDOCAINE
     Indication: Epidural analgesia
     Dosage: EPIDURAL ANALGESIA (EPA)
  2. FENTANYL [Suspect]
     Active Substance: FENTANYL
     Indication: Epidural analgesia
     Dosage: 5 ML OF A MIXTURE OF LEVOBUPIVACAINE, FENTANYL, AND ADRENALINE
  3. LEVOBUPIVACAINE [Suspect]
     Active Substance: LEVOBUPIVACAINE
     Indication: Epidural analgesia
     Dosage: 5 ML OF A MIXTURE OF LEVOBUPIVACAINE, FENTANYL, AND ADRENALINE
  4. EPINEPHRINE [Concomitant]
     Active Substance: EPINEPHRINE
     Dosage: 5 ML OF A MIXTURE OF LEVOBUPIVACAINE, FENTANYL, AND ADRENALINE
  5. SALINE [Concomitant]
     Active Substance: SODIUM CHLORIDE

REACTIONS (5)
  - Hypotension [Recovered/Resolved]
  - Spinal shock [Recovered/Resolved]
  - Brain stem stroke [Recovering/Resolving]
  - Ischaemic stroke [Recovering/Resolving]
  - Administration site extravasation [Recovering/Resolving]
